FAERS Safety Report 6839552-0 (Version None)
Quarter: 2010Q3

REPORT INFORMATION
  Report Type: 
  Country: None (occurrence: None)
  Receive Date: 20100714
  Receipt Date: 20100203
  Transmission Date: 20110219
  Serious: No
  Sender: FDA-Public Use
  Company Number: A0842796A

PATIENT
  Age: 77 Year
  Sex: Female

DRUGS (4)
  1. FLOVENT [Suspect]
     Indication: ASTHMA
     Dosage: 2PUFF PER DAY
     Route: 055
     Dates: start: 20100121
  2. MICARDIS [Concomitant]
  3. CLONIDINE [Concomitant]
  4. NITROGLYCERIN [Concomitant]

REACTIONS (3)
  - EAR PAIN [None]
  - NASAL CONGESTION [None]
  - PAIN IN JAW [None]
